FAERS Safety Report 6631341-5 (Version None)
Quarter: 2010Q1

REPORT INFORMATION
  Report Type: 
  Country: None (occurrence: None)
  Receive Date: 20100311
  Receipt Date: 20100311
  Transmission Date: 20100710
  Serious: Yes (Hospitalization)
  Sender: FDA-Public Use
  Company Number: None

PATIENT
  Sex: Female
  Weight: 66.7 kg

DRUGS (8)
  1. DOXORUBICIN HCL [Suspect]
     Dosage: 1068 MG
  2. CYCLOPHOSPHAMIDE [Suspect]
     Dosage: 1068 MG
  3. BICITRA [Concomitant]
  4. EPIVIR [Concomitant]
  5. HYDROCHLOROTHIAZIDE [Concomitant]
  6. KEFLEX [Concomitant]
  7. LORTAB [Concomitant]
  8. NORVASC [Concomitant]

REACTIONS (4)
  - CHOLECYSTITIS ACUTE [None]
  - HEPATITIS A ANTIBODY POSITIVE [None]
  - HEPATITIS B DNA ASSAY POSITIVE [None]
  - HEPATITIS C ANTIBODY POSITIVE [None]
